FAERS Safety Report 6618701-3 (Version None)
Quarter: 2010Q1

REPORT INFORMATION
  Report Type: 
  Country: None (occurrence: None)
  Receive Date: 20100302
  Receipt Date: 20100219
  Transmission Date: 20100710
  Serious: Yes (Death, Life-Threatening, Hospitalization, Disabling)
  Sender: FDA-Public Use
  Company Number: WAES 0912USA01662

PATIENT
  Age: 66 Year
  Sex: Female
  Weight: 49.4421 kg

DRUGS (23)
  1. CAP VORINOSTAT UNK [Suspect]
     Indication: CHRONIC LYMPHOCYTIC LEUKAEMIA
     Dosage: 400 MG/DAILY/PO
     Route: 048
     Dates: start: 20091119, end: 20091202
  2. CAP VORINOSTAT UNK [Suspect]
     Indication: CHRONIC LYMPHOCYTIC LEUKAEMIA
     Dosage: 400 MG/DAILY/PO
     Route: 048
     Dates: start: 20091221, end: 20100105
  3. LEUSTATIN [Suspect]
     Indication: CHRONIC LYMPHOCYTIC LEUKAEMIA
     Dosage: 7.5 MG/DAILY/IV
     Route: 042
     Dates: start: 20091119, end: 20091123
  4. LEUSTATIN [Suspect]
     Indication: CHRONIC LYMPHOCYTIC LEUKAEMIA
     Dosage: 7.5 MG/DAILY/IV
     Route: 042
     Dates: start: 20091221, end: 20091225
  5. RITUXAN [Suspect]
     Indication: CHRONIC LYMPHOCYTIC LEUKAEMIA
     Dosage: 560 MG/1X/IV, 600 MG/1X/IV
     Route: 042
     Dates: start: 20091121, end: 20091121
  6. RITUXAN [Suspect]
     Indication: CHRONIC LYMPHOCYTIC LEUKAEMIA
     Dosage: 560 MG/1X/IV, 600 MG/1X/IV
     Route: 042
     Dates: start: 20091201, end: 20091201
  7. RITUXAN [Suspect]
     Indication: CHRONIC LYMPHOCYTIC LEUKAEMIA
     Dosage: 560 MG/1X/IV, 600 MG/1X/IV
     Route: 042
     Dates: start: 20091207, end: 20091207
  8. RITUXAN [Suspect]
     Indication: CHRONIC LYMPHOCYTIC LEUKAEMIA
     Dosage: 560 MG/1X/IV, 600 MG/1X/IV
     Route: 042
     Dates: start: 20091213, end: 20091213
  9. RITUXAN [Suspect]
     Indication: CHRONIC LYMPHOCYTIC LEUKAEMIA
     Dosage: 560 MG/1X/IV, 600 MG/1X/IV
     Route: 042
     Dates: start: 20091223, end: 20091223
  10. BENADRYL [Concomitant]
  11. CIPRO [Concomitant]
  12. DECADRON (DEXAMETHASONE SODIUM P [Concomitant]
  13. DIFLUCAN [Concomitant]
  14. LEXAPRO [Concomitant]
  15. PREVACID [Concomitant]
  16. SENOKOT [Concomitant]
  17. TYLENOL-500 [Concomitant]
  18. ZOFRAN [Concomitant]
  19. ZOVIRAX [Concomitant]
  20. BLOOD CELLS, RED [Concomitant]
  21. LEVOTHYROXINE SODIUM [Concomitant]
  22. MAGNESIUM HYDROXIDE TAB [Concomitant]
  23. PLATELETS [Concomitant]

REACTIONS (30)
  - ANIMAL SCRATCH [None]
  - ANXIETY [None]
  - ASPARTATE AMINOTRANSFERASE INCREASED [None]
  - BLOOD ALBUMIN DECREASED [None]
  - BLOOD CALCIUM DECREASED [None]
  - BLOOD PRESSURE DIASTOLIC INCREASED [None]
  - BLOOD SODIUM DECREASED [None]
  - CACHEXIA [None]
  - CONSTIPATION [None]
  - DRY MOUTH [None]
  - DYSPHAGIA [None]
  - FATIGUE [None]
  - FEBRILE NEUTROPENIA [None]
  - HAEMATOCRIT DECREASED [None]
  - HAEMOGLOBIN DECREASED [None]
  - HEADACHE [None]
  - HEART RATE INCREASED [None]
  - HERPES SIMPLEX [None]
  - HYPOKALAEMIA [None]
  - HYPOPHAGIA [None]
  - INSOMNIA [None]
  - NAUSEA [None]
  - PAIN [None]
  - PERFORMANCE STATUS DECREASED [None]
  - PHARYNGEAL DISORDER [None]
  - PLATELET COUNT DECREASED [None]
  - RED BLOOD CELL COUNT DECREASED [None]
  - STOMATITIS [None]
  - STREPTOCOCCAL BACTERAEMIA [None]
  - WEIGHT DECREASED [None]
